FAERS Safety Report 12422870 (Version 1)
Quarter: 2016Q2

REPORT INFORMATION
  Report Type: Spontaneous
  Country: US (occurrence: US)
  Receive Date: 20160601
  Receipt Date: 20160601
  Transmission Date: 20160815
  Serious: No
  Sender: FDA-Public Use
  Company Number: US-ASTRAZENECA-2016SE38913

PATIENT
  Sex: Female

DRUGS (1)
  1. BRILINTA [Suspect]
     Active Substance: TICAGRELOR
     Dosage: 90 MG TWO TIMES A DAY
     Route: 048

REACTIONS (3)
  - Thinking abnormal [Unknown]
  - Anger [Unknown]
  - Dyspnoea [Unknown]
